FAERS Safety Report 15952291 (Version 1)
Quarter: 2019Q1

REPORT INFORMATION
  Report Type: Spontaneous
  Country: US (occurrence: US)
  Receive Date: 20190211
  Receipt Date: 20190211
  Transmission Date: 20190417
  Serious: Yes (Hospitalization, Other)
  Sender: FDA-Public Use
  Company Number: US-PFIZER INC-2019005408

PATIENT
  Age: 79 Year
  Sex: Female
  Weight: 61.23 kg

DRUGS (2)
  1. DETROL LA [Suspect]
     Active Substance: TOLTERODINE TARTRATE
     Dosage: 4 MG, 1X/DAY
     Route: 048
  2. DETROL LA [Suspect]
     Active Substance: TOLTERODINE TARTRATE
     Dosage: 1 BY MOUTH TWICE DAILY
     Route: 048

REACTIONS (8)
  - Hypoaesthesia [Unknown]
  - Musculoskeletal disorder [Not Recovered/Not Resolved]
  - Product use issue [Unknown]
  - Spinal column stenosis [Unknown]
  - Spinal osteoarthritis [Unknown]
  - Body height decreased [Not Recovered/Not Resolved]
  - Cellulitis [Recovering/Resolving]
  - Spondylitis [Unknown]

NARRATIVE: CASE EVENT DATE: 20190108
